FAERS Safety Report 5129498-0 (Version None)
Quarter: 2006Q4

REPORT INFORMATION
  Report Type: 
  Country: None (occurrence: None)
  Receive Date: 20061012
  Receipt Date: 20061002
  Transmission Date: 20070319
  Serious: Yes (Other)
  Sender: FDA-Public Use
  Company Number: 163-20785-06100175

PATIENT

DRUGS (7)
  1. THALOMID [Suspect]
     Indication: SARCOMA
     Dosage: 200 MG, DAILY, 7-21, 28-42, ORAL
     Route: 048
     Dates: start: 20060201, end: 20060401
  2. COHAPRE [Concomitant]
  3. DOXORUBICIN (DOXORUBICIN) INJECTION FOR INFUSION [Concomitant]
  4. IFOSFAMIDE (IFOSFAMIDE) (INFECTION FOR INFUSION) [Concomitant]
  5. DTIC (DACARBAZINE (INJECTION FOR INFUSION) [Concomitant]
  6. G-CSF (GRANULOCYTE COLONY STIMULATING FACTOR) (INJECTION) [Concomitant]
  7. EBRT [Concomitant]

REACTIONS (36)
  - ALOPECIA [None]
  - ANXIETY [None]
  - ARRHYTHMIA SUPRAVENTRICULAR [None]
  - ASTHENIA [None]
  - BRONCHOSPASM [None]
  - CONSTIPATION [None]
  - DEHYDRATION [None]
  - DEPRESSION [None]
  - DERMATITIS [None]
  - DIZZINESS [None]
  - ELECTROCARDIOGRAM QT CORRECTED INTERVAL PROLONGED [None]
  - FATIGUE [None]
  - GASTRIC ULCER [None]
  - HYPERBILIRUBINAEMIA [None]
  - HYPERGLYCAEMIA [None]
  - HYPOALBUMINAEMIA [None]
  - HYPOCALCAEMIA [None]
  - HYPOKALAEMIA [None]
  - HYPOMAGNESAEMIA [None]
  - HYPOTENSION [None]
  - LETHARGY [None]
  - LYMPHOPENIA [None]
  - MALAISE [None]
  - MUSCULAR WEAKNESS [None]
  - NAUSEA [None]
  - NEUTROPHIL COUNT INCREASED [None]
  - NODAL ARRHYTHMIA [None]
  - PAIN [None]
  - PAIN IN EXTREMITY [None]
  - PALMAR-PLANTAR ERYTHRODYSAESTHESIA SYNDROME [None]
  - RADIATION INJURY [None]
  - SINUS BRADYCARDIA [None]
  - SYNCOPE [None]
  - VOMITING [None]
  - WEIGHT DECREASED [None]
  - WHEEZING [None]
